FAERS Safety Report 20036283 (Version 2)
Quarter: 2021Q4

REPORT INFORMATION
  Report Type: Spontaneous
  Country: NL (occurrence: NL)
  Receive Date: 20211105
  Receipt Date: 20211117
  Transmission Date: 20220303
  Serious: Yes (Other)
  Sender: FDA-Public Use
  Company Number: None

PATIENT
  Age: 51 Year
  Sex: Female
  Weight: 135.7 kg

DRUGS (11)
  1. SULFAMETHOXAZOLE\TRIMETHOPRIM [Suspect]
     Active Substance: SULFAMETHOXAZOLE\TRIMETHOPRIM
     Indication: Pneumocystis jirovecii pneumonia
     Dosage: 3 DOSAGE FORMS DAILY;  960 TABLET 160/800MG,THERAPY END DATE :ASKU
     Dates: start: 20210927
  2. PREDNISOLONE [Concomitant]
     Active Substance: PREDNISOLONE
     Dosage: 5 MG (MILLIGRAM),THERAPY START DATE :ASKU,THERAPY END DATE :ASKU
  3. AMLODIPINE [Concomitant]
     Active Substance: AMLODIPINE BESYLATE
     Dosage: 10 MG (MILLIGRAM),THERAPY START DATE :ASKU,THERAPY END DATE :ASKU
  4. CALCIUMCARB/COLECALC [Concomitant]
     Dosage: 1.25 G (GRAMS)/800 UNITS, STRENGTH :  1.25G/800IU (500MG CA),THERAPY START DATE :ASKU,THERAPY END DA
  5. METOCLOPRAMIDE [Concomitant]
     Active Substance: METOCLOPRAMIDE
     Dosage: 10 MG (MILLIGRAM),THERAPY START DATE :ASKU,THERAPY END DATE :ASKU
  6. TOPIRAMATE [Concomitant]
     Active Substance: TOPIRAMATE
     Dosage: 25 MG (MILLIGRAM),THERAPY START DATE :ASKU,THERAPY END DATE :ASKU
  7. SIMVASTATIN [Concomitant]
     Active Substance: SIMVASTATIN
     Dosage: 10 MG (MILLIGRAM),THERAPY START DATE :ASKU,THERAPY END DATE :ASKU
  8. ESCITALOPRAM [Concomitant]
     Active Substance: ESCITALOPRAM OXALATE
     Dosage: 10 MG (MILLIGRAM),THERAPY START DATE :ASKU,THERAPY END DATE :ASKU
  9. PANTOPRAZOLE SODIUM [Concomitant]
     Active Substance: PANTOPRAZOLE SODIUM
     Dosage: 40 MG (MILLIGRAM),THERAPY START DATE :ASKU,THERAPY END DATE :ASKU
  10. LEVOTHYROXINE (NATRIUM) [Concomitant]
     Dosage: 175 MCG(MICROGRAM),THERAPY START DATE :ASKU,THERAPY END DATE :ASKU
  11. AZATHIOPRINE/ IMURAN [Concomitant]
     Dosage: 50 MG (MILLIGRAM),THERAPY START DATE :ASKU,THERAPY END DATE :ASKU

REACTIONS (1)
  - Renal impairment [Not Recovered/Not Resolved]

NARRATIVE: CASE EVENT DATE: 20210929
